FAERS Safety Report 7276615-2 (Version None)
Quarter: 2011Q1

REPORT INFORMATION
  Report Type: 
  Country: None (occurrence: None)
  Receive Date: 20110204
  Receipt Date: 20110128
  Transmission Date: 20110831
  Serious: Yes (Other)
  Sender: FDA-Public Use
  Company Number: US-BAYER-2011-010928

PATIENT
  Sex: Female

DRUGS (2)
  1. AVELOX [Suspect]
     Indication: INFECTION
     Dosage: 400 MG, ONCE
     Route: 048
     Dates: start: 20110125
  2. OXYCODONE HCL [Concomitant]

REACTIONS (3)
  - ERYTHEMA [None]
  - EYE SWELLING [None]
  - SWELLING FACE [None]
